FAERS Safety Report 9481691 (Version 1)
Quarter: 2013Q3

REPORT INFORMATION
  Report Type: Spontaneous
  Country: US (occurrence: US)
  Receive Date: 20130828
  Receipt Date: 20130828
  Transmission Date: 20140515
  Serious: Yes (Hospitalization, Other)
  Sender: FDA-Public Use
  Company Number: US-AMGEN-KDL219968

PATIENT
  Age: 42 Year
  Sex: Female

DRUGS (2)
  1. ENBREL [Suspect]
     Indication: RHEUMATOID ARTHRITIS
     Dosage: 50 MG, QWK
     Route: 058
     Dates: start: 2003, end: 200612
  2. METHOTREXATE [Concomitant]
     Dosage: 15 MG, QWK
     Route: 048
     Dates: start: 1991

REACTIONS (4)
  - Localised infection [Unknown]
  - Limb operation [Recovered/Resolved]
  - Foot operation [Recovered/Resolved]
  - Drug ineffective [Not Recovered/Not Resolved]
